FAERS Safety Report 10628107 (Version 1)
Quarter: 2014Q4

REPORT INFORMATION
  Report Type: Spontaneous
  Country: US (occurrence: US)
  Receive Date: 20141205
  Receipt Date: 20141205
  Transmission Date: 20150529
  Serious: No
  Sender: FDA-Public Use
  Company Number: US-BRISTOL-MYERS SQUIBB COMPANY-21056866

PATIENT
  Age: 64 Year
  Sex: Male
  Weight: 97.5 kg

DRUGS (1)
  1. WARFARIN SODIUM. [Suspect]
     Active Substance: WARFARIN SODIUM
     Indication: THROMBOSIS

REACTIONS (3)
  - Malaise [Unknown]
  - Asthenia [Unknown]
  - Feeling abnormal [Unknown]
